FAERS Safety Report 5676552-0 (Version None)
Quarter: 2008Q1

REPORT INFORMATION
  Report Type: 
  Country: None (occurrence: None)
  Receive Date: 20080321
  Receipt Date: 20080321
  Transmission Date: 20080703
  Serious: No
  Sender: FDA-Public Use
  Company Number: None

PATIENT
  Age: 60 Year
  Sex: Male
  Weight: 93.8946 kg

DRUGS (5)
  1. SIMVASTATIN [Suspect]
     Dosage: 40MG  ONE PO QPM
     Route: 048
     Dates: start: 20080117, end: 20080211
  2. LISINOPRIL [Concomitant]
  3. LOPRESSOR [Concomitant]
  4. PROTONIX [Concomitant]
  5. ASPIRIN [Concomitant]

REACTIONS (6)
  - AMNESIA [None]
  - DIARRHOEA [None]
  - ECONOMIC PROBLEM [None]
  - MYALGIA [None]
  - NAUSEA [None]
  - PHARMACEUTICAL PRODUCT COMPLAINT [None]
